FAERS Safety Report 5174001-2 (Version None)
Quarter: 2006Q4

REPORT INFORMATION
  Report Type: 
  Country: None (occurrence: None)
  Receive Date: 20061214
  Receipt Date: 20061208
  Transmission Date: 20070319
  Serious: Yes (Other)
  Sender: FDA-Public Use
  Company Number: US-MERCK-0612USA01337

PATIENT
  Age: 96 Year
  Sex: Male

DRUGS (2)
  1. TRUSOPT [Suspect]
     Indication: OPEN ANGLE GLAUCOMA
     Route: 047
  2. TRAVOPROST [Concomitant]
     Indication: OPEN ANGLE GLAUCOMA
     Route: 065

REACTIONS (3)
  - INTRAOCULAR PRESSURE INCREASED [None]
  - MACULAR OEDEMA [None]
  - RETINAL VEIN OCCLUSION [None]
